FAERS Safety Report 21642198 (Version 2)
Quarter: 2022Q4

REPORT INFORMATION
  Report Type: Spontaneous
  Country: AU (occurrence: AU)
  Receive Date: 20221125
  Receipt Date: 20221214
  Transmission Date: 20230112
  Serious: Yes (Other)
  Sender: FDA-Public Use
  Company Number: AU-BAYER-2022P021767

PATIENT
  Sex: Male

DRUGS (2)
  1. EYLEA [Suspect]
     Active Substance: AFLIBERCEPT
     Indication: Choroidal neovascularisation
     Dosage: AS RECOMMENDED ON LABEL, SOLUTION FOR INJECTION IN PRE-FILLED SYRINGE
     Route: 031
  2. EYLEA [Suspect]
     Active Substance: AFLIBERCEPT
     Indication: Age-related macular degeneration
     Dosage: USING EVERY 2 WEEKS INSTEAD OF EVERY 4 WEEKS, SOLUTION FOR INJECTION IN PRE-FILLED SYRINGE
     Route: 031

REACTIONS (4)
  - Macular oedema [Unknown]
  - Off label use [Unknown]
  - Visual impairment [Unknown]
  - Drug ineffective [Unknown]
